FAERS Safety Report 25901244 (Version 3)
Quarter: 2025Q4

REPORT INFORMATION
  Report Type: Report from Study
  Country: EU (occurrence: EU)
  Receive Date: 20251009
  Receipt Date: 20251209
  Transmission Date: 20260118
  Serious: Yes (Hospitalization)
  Sender: ABBVIE
  Company Number: EU-ABBVIE-6491790

PATIENT
  Sex: Female

DRUGS (1)
  1. FOSCARBIDOPA\FOSLEVODOPA [Suspect]
     Active Substance: FOSCARBIDOPA\FOSLEVODOPA
     Indication: Parkinson^s disease
     Dosage: DOSAGE: CRN: 0.22 ML/H; CR: 0.26 ML/H; CRH: 0.27 ML/H; ED: 0.1 ML
     Route: 058
     Dates: start: 20240118

REACTIONS (5)
  - Mental disorder [Not Recovered/Not Resolved]
  - Bradykinesia [Not Recovered/Not Resolved]
  - Freezing phenomenon [Recovering/Resolving]
  - Malaise [Unknown]
  - On and off phenomenon [Recovering/Resolving]
